FAERS Safety Report 19365947 (Version 4)
Quarter: 2021Q3

REPORT INFORMATION
  Report Type: Spontaneous
  Country: JP (occurrence: JP)
  Receive Date: 20210602
  Receipt Date: 20210810
  Transmission Date: 20211014
  Serious: Yes (Hospitalization)
  Sender: FDA-Public Use
  Company Number: JP-ABBVIE-21K-087-3931221-00

PATIENT
  Age: 72 Year
  Sex: Male

DRUGS (9)
  1. LEVOCETIRIZINE HYDROCHLORIDE [Concomitant]
     Active Substance: LEVOCETIRIZINE HYDROCHLORIDE
     Indication: PRURITUS
     Dosage: FREQUENCY TEXT ?PRN
     Route: 048
  2. HUMIRA [Suspect]
     Active Substance: ADALIMUMAB
     Route: 058
     Dates: start: 2021, end: 20210628
  3. HUMIRA [Suspect]
     Active Substance: ADALIMUMAB
     Indication: PSORIASIS
     Route: 058
     Dates: start: 20210508, end: 202105
  4. METHYLPREDNISOLONE. [Concomitant]
     Active Substance: METHYLPREDNISOLONE
     Indication: PSORIASIS
     Dosage: FREQUENCY TEXT PRN
     Route: 061
  5. CALCIPOTRIENE AND BETAMETHASONE DIPROPIONATE [Concomitant]
     Active Substance: BETAMETHASONE DIPROPIONATE\CALCIPOTRIENE
     Indication: PRURITUS
     Dosage: FREQUENCY TEXT PRN
     Route: 061
  6. HEPARINOID [Concomitant]
     Active Substance: CHONDROITIN SULFATE (BOVINE)
     Indication: PRURITUS
     Dosage: FREQUENCY TEXT  PRN
     Route: 061
  7. FRADIOMYCIN SULFATE [Concomitant]
     Indication: PSORIASIS
     Dosage: FREQUENCY TEXT? PRN
     Route: 061
  8. DEPRODONE PROPIONATE [Concomitant]
     Active Substance: DEPRODONE PROPIONATE
     Indication: PRURITUS
     Dosage: FREQUENCY TEXT PRN
     Route: 062
  9. BETAMETHASONE BUTYRATE PROPIONATE [Concomitant]
     Active Substance: BETAMETHASONE BUTYRATE PROPIONATE
     Indication: PRURITUS
     Dosage: FREQUENCY TEXT? PRN
     Route: 061

REACTIONS (2)
  - Cerebral infarction [Recovered/Resolved with Sequelae]
  - Hydrocephalus [Recovered/Resolved]

NARRATIVE: CASE EVENT DATE: 20210508
